FAERS Safety Report 4901671-3 (Version None)
Quarter: 2006Q1

REPORT INFORMATION
  Report Type: 
  Country: None (occurrence: None)
  Receive Date: 20060206
  Receipt Date: 20050927
  Transmission Date: 20060701
  Serious: No
  Sender: FDA-Public Use
  Company Number: US-BRISTOL-MYERS SQUIBB COMPANY-13130190

PATIENT
  Age: 93 Year
  Sex: Male

DRUGS (1)
  1. TAXOL [Suspect]

REACTIONS (1)
  - DRUG ADMINISTRATION ERROR [None]
